FAERS Safety Report 12450593 (Version 1)
Quarter: 2016Q2

REPORT INFORMATION
  Report Type: Spontaneous
  Country: US (occurrence: US)
  Receive Date: 20160609
  Receipt Date: 20160609
  Transmission Date: 20160815
  Serious: Yes (Other)
  Sender: FDA-Public Use
  Company Number: US-WATSON-2016-11875

PATIENT
  Age: 65 Year
  Sex: Male
  Weight: 91 kg

DRUGS (11)
  1. WELLBUTRIN [Concomitant]
     Active Substance: BUPROPION HYDROCHLORIDE
     Indication: BRAIN INJURY
     Dosage: 150 MG, 3 PILLS TWICE A DAY (1 IN THE MORNING, 2 AT NIGHT)
     Route: 065
  2. LIPITOR [Concomitant]
     Active Substance: ATORVASTATIN CALCIUM
     Indication: BLOOD CHOLESTEROL
     Dosage: 40 MG, ONCE A DAY AT BED TIME
     Route: 065
  3. METFORMIN [Concomitant]
     Active Substance: METFORMIN HYDROCHLORIDE
     Indication: DIABETES MELLITUS
     Dosage: 500 MG, ONE TABLET AT NIGHT
     Route: 065
  4. ATENOLOL. [Concomitant]
     Active Substance: ATENOLOL
     Indication: CHEST PAIN
     Dosage: 25 MG, BID
     Route: 065
  5. POTASSIUM CHLORIDE. [Concomitant]
     Active Substance: POTASSIUM CHLORIDE
     Indication: PRODUCT USED FOR UNKNOWN INDICATION
     Dosage: ^ONE 10 MEQ^ WHICH WAS ONE AND HALF TEASPOON AT BED TIME
     Route: 065
  6. KLONOPIN [Concomitant]
     Active Substance: CLONAZEPAM
     Indication: ANXIETY
     Dosage: 1 MG, TAKES 2 MG IN A DAY AS NEEDED
     Route: 065
  7. NITROSTAT [Concomitant]
     Active Substance: NITROGLYCERIN
     Indication: PRODUCT USED FOR UNKNOWN INDICATION
     Dosage: 0.1 MG, AS NEEDED DAILY
     Route: 065
  8. LYRICA [Suspect]
     Active Substance: PREGABALIN
     Indication: FIBROMYALGIA
     Dosage: 75 MG, TWICE A DAY
     Route: 048
     Dates: start: 20160427
  9. LYRICA [Suspect]
     Active Substance: PREGABALIN
     Dosage: 150 MG, TWICE A DAY
     Route: 048
     Dates: start: 20160516
  10. DICYCLOMINE HYDROCHLORIDE (WATSON LABORATORIES) [Suspect]
     Active Substance: DICYCLOMINE HYDROCHLORIDE
     Indication: PRODUCT USED FOR UNKNOWN INDICATION
     Dosage: 1 TABLET, TWICE A DAY AS NEEDED
     Route: 048
  11. PAMELOR [Concomitant]
     Active Substance: NORTRIPTYLINE HYDROCHLORIDE
     Indication: BRAIN INJURY
     Dosage: 50 MG TABLET AT BED TIME ONCE A DAY
     Route: 065

REACTIONS (5)
  - Drug administration error [Unknown]
  - Abdominal discomfort [Unknown]
  - Delirium [Unknown]
  - Loss of consciousness [Unknown]
  - Eye disorder [Unknown]

NARRATIVE: CASE EVENT DATE: 20160521
